FAERS Safety Report 6007596-7 (Version None)
Quarter: 2008Q4

REPORT INFORMATION
  Report Type: 
  Country: None (occurrence: None)
  Receive Date: 20081215
  Receipt Date: 20081204
  Transmission Date: 20090506
  Serious: Yes (Hospitalization)
  Sender: FDA-Public Use
  Company Number: 2008SP025016

PATIENT
  Age: 80 Year
  Sex: Female

DRUGS (21)
  1. DIAFUSOR   (GLYCERYL TRINITRATE) [Suspect]
     Indication: DRUG USE FOR UNKNOWN INDICATION
     Dosage: 15 MG; QD; CUT, 30 MG; ; CUT
     Route: 003
  2. ADANCOR (NICORANDIL) [Suspect]
     Indication: DRUG USE FOR UNKNOWN INDICATION
     Dosage: 10 MG; BID;
     Dates: end: 20040927
  3. NITROGLYCERIN [Suspect]
     Indication: DRUG USE FOR UNKNOWN INDICATION
  4. LASIX [Suspect]
     Indication: DRUG USE FOR UNKNOWN INDICATION
     Dosage: 40 MG; QD;
  5. COZAAR [Suspect]
     Indication: DRUG USE FOR UNKNOWN INDICATION
     Dosage: 50 MG; QD;
  6. ALDACTONE [Suspect]
     Indication: DRUG USE FOR UNKNOWN INDICATION
     Dosage: 25 MG; QD;
  7. ................... [Concomitant]
  8. MEPRONIZINE [Concomitant]
  9. CORDARONE [Concomitant]
  10. PREVISCAN [Concomitant]
  11. TAHOR [Concomitant]
  12. LEXOMIL [Concomitant]
  13. BRONCHODUAL [Concomitant]
  14. VENTOLIN [Concomitant]
  15. CYSTINE B6 [Concomitant]
  16. ANAFRANIL [Concomitant]
  17. ZAMUDOL [Concomitant]
  18. ZALDIAR [Concomitant]
  19. MOPRAL [Concomitant]
  20. TARDYFERON [Concomitant]
  21. SOLUPRED [Concomitant]

REACTIONS (17)
  - ANAEMIA [None]
  - CARDIOMEGALY [None]
  - CONFUSIONAL STATE [None]
  - DIZZINESS [None]
  - FALL [None]
  - HEAD INJURY [None]
  - INFLAMMATION [None]
  - LOSS OF CONSCIOUSNESS [None]
  - MEDICATION ERROR [None]
  - MULTIPLE DRUG OVERDOSE [None]
  - ORTHOSTATIC HYPOTENSION [None]
  - PLEURAL EFFUSION [None]
  - RENAL IMPAIRMENT [None]
  - RHABDOMYOLYSIS [None]
  - SENSORY DISTURBANCE [None]
  - THROMBOCYTOPENIA [None]
  - VISUAL ACUITY REDUCED [None]
